FAERS Safety Report 8339916-2 (Version None)
Quarter: 2012Q2

REPORT INFORMATION
  Report Type: 
  Country: None (occurrence: None)
  Receive Date: 20120507
  Receipt Date: 20090109
  Transmission Date: 20120825
  Serious: No
  Sender: FDA-Public Use
  Company Number: US-TEVA-2008001000

PATIENT
  Sex: Male
  Weight: 118.04 kg

DRUGS (3)
  1. TREANDA [Suspect]
     Indication: CHRONIC LYMPHOCYTIC LEUKAEMIA
     Route: 042
     Dates: start: 20081014
  2. NEULASTA [Concomitant]
     Indication: NEUTROPENIA
     Route: 058
  3. RITUXAN [Suspect]
     Indication: CHRONIC LYMPHOCYTIC LEUKAEMIA
     Dosage: 13.3929 MG/M2;
     Route: 042

REACTIONS (3)
  - INFUSION SITE EXTRAVASATION [None]
  - INFUSION SITE ERYTHEMA [None]
  - INFUSION SITE SWELLING [None]
